FAERS Safety Report 17893745 (Version 2)
Quarter: 2020Q2

REPORT INFORMATION
  Report Type: Report from Study
  Country: NL (occurrence: NL)
  Receive Date: 20200615
  Receipt Date: 20200619
  Transmission Date: 20200714
  Serious: Yes (Hospitalization, Other)
  Sender: FDA-Public Use
  Company Number: NL-ROCHE-2605321

PATIENT
  Sex: Male
  Weight: 16.3 kg

DRUGS (2)
  1. ENTRECTINIB [Suspect]
     Active Substance: ENTRECTINIB
     Indication: GLIOMA
     Dosage: ONGOING, 1DD?300MG/M2 QD.
     Route: 048
     Dates: start: 20200414
  2. ZOFRAN [Concomitant]
     Active Substance: ONDANSETRON HYDROCHLORIDE
     Indication: NAUSEA
     Dosage: PRN, 3DD, ONGOING
     Route: 048
     Dates: start: 20191215

REACTIONS (8)
  - Drooling [Recovered/Resolved with Sequelae]
  - Mood swings [Not Recovered/Not Resolved]
  - Pyramidal tract syndrome [Unknown]
  - Blood urea increased [Not Recovered/Not Resolved]
  - Insomnia [Recovered/Resolved]
  - Fatigue [Recovered/Resolved]
  - Balance disorder [Not Recovered/Not Resolved]
  - Blood creatinine increased [Not Recovered/Not Resolved]

NARRATIVE: CASE EVENT DATE: 20200414
